FAERS Safety Report 8801741 (Version 1)
Quarter: 2012Q4

REPORT INFORMATION
  Report Type: 
  Country: US (occurrence: US)
  Receive Date: 20120921
  Receipt Date: 20120921
  Transmission Date: 20130627
  Serious: No
  Sender: FDA-Public Use
  Company Number: US-PFIZER INC-2012232548

PATIENT
  Sex: Female

DRUGS (3)
  1. LYRICA [Suspect]
     Indication: FIBROMYALGIA
     Dosage: 25 mg, 2x/day
     Route: 048
     Dates: start: 20120904
  2. CYMBALTA [Suspect]
     Dosage: UNK
     Dates: end: 201209
  3. ALEVE [Concomitant]
     Dosage: UNK

REACTIONS (3)
  - Diarrhoea [Not Recovered/Not Resolved]
  - Gastrointestinal disorder [Not Recovered/Not Resolved]
  - Drug dispensing error [Unknown]
